FAERS Safety Report 11193884 (Version 1)
Quarter: 2015Q2

REPORT INFORMATION
  Report Type: Spontaneous
  Country: DK (occurrence: FR)
  Receive Date: 20150616
  Receipt Date: 20150616
  Transmission Date: 20150821
  Serious: Yes (Other)
  Sender: FDA-Public Use
  Company Number: FR-FRI-1000077320

PATIENT
  Sex: Male

DRUGS (1)
  1. ESCITALOPRAM [Suspect]
     Active Substance: ESCITALOPRAM OXALATE
     Indication: DEPRESSION
     Route: 064
     Dates: start: 200512, end: 200603

REACTIONS (2)
  - Foetal exposure during pregnancy [Recovered/Resolved]
  - Neurodevelopmental disorder [Not Recovered/Not Resolved]

NARRATIVE: CASE EVENT DATE: 200512
